FAERS Safety Report 5495652-1 (Version None)
Quarter: 2007Q4

REPORT INFORMATION
  Report Type: 
  Country: None (occurrence: None)
  Receive Date: 20071025
  Receipt Date: 20071018
  Transmission Date: 20080405
  Serious: No
  Sender: FDA-Public Use
  Company Number: US-JNJFOC-20071005158

PATIENT
  Age: 40 Year
  Sex: Female

DRUGS (2)
  1. INVEGA [Suspect]
     Indication: SCHIZOPHRENIA
     Route: 048
     Dates: start: 20070101
  2. CLOZARIL [Concomitant]
     Indication: SCHIZOPHRENIA
     Route: 048

REACTIONS (4)
  - AKATHISIA [None]
  - ANXIETY [None]
  - INSOMNIA [None]
  - TREMOR [None]
